FAERS Safety Report 5337460-8 (Version None)
Quarter: 2007Q2

REPORT INFORMATION
  Report Type: 
  Country: None (occurrence: None)
  Receive Date: 20070524
  Receipt Date: 20070508
  Transmission Date: 20071010
  Serious: Yes (Life-Threatening, Hospitalization, Disabling, Other)
  Sender: FDA-Public Use
  Company Number: VNL_0494_2007

PATIENT
  Sex: Female

DRUGS (6)
  1. APOMORPHINE HYDROCHLORIDE (APOFIN) [Suspect]
     Indication: PARKINSON'S DISEASE
     Dosage: (6.4 MG PER HOUR FOR 1 YEAR  SUBCUTANEOUS)
     Route: 058
     Dates: start: 20041220, end: 20050901
  2. APOMORPHINE HYDROCHLORIDE (APOFIN) [Suspect]
     Indication: PARKINSON'S DISEASE
     Dosage: (5 MG PER HOUR FOR 2 MONTHS SUBCUTANEOUS), (3 MG SUBCUTANEOUS)
     Route: 058
     Dates: start: 20050901, end: 20051109
  3. APOMORPHINE HYDROCHLORIDE (APOFIN) [Suspect]
     Indication: PARKINSON'S DISEASE
     Dosage: (5 MG PER HOUR FOR 2 MONTHS SUBCUTANEOUS), (3 MG SUBCUTANEOUS)
     Route: 058
     Dates: start: 20050901, end: 20061109
  4. APOMORPHINE HYDROCHLORIDE (APOFIN) [Suspect]
     Indication: PARKINSON'S DISEASE
     Dosage: (0.35 MG PER HOUR SUBCUTANEOUS)
     Route: 058
     Dates: start: 20060101
  5. LEVODOPA [Concomitant]
  6. PRAMIPEXOLE DIHYDROCHLORIDE [Concomitant]

REACTIONS (7)
  - AGITATION [None]
  - ANOREXIA [None]
  - HALLUCINATION [None]
  - HALLUCINATION, VISUAL [None]
  - PARANOIA [None]
  - POOR QUALITY SLEEP [None]
  - SUICIDE ATTEMPT [None]
